FAERS Safety Report 4381882-9 (Version None)
Quarter: 2004Q2

REPORT INFORMATION
  Report Type: 
  Country: None (occurrence: None)
  Receive Date: 20040610
  Receipt Date: 20040329
  Transmission Date: 20050107
  Serious: No
  Sender: FDA-Public Use
  Company Number: A03200400974

PATIENT
  Age: 68 Year
  Sex: Male
  Weight: 86.1834 kg

DRUGS (4)
  1. ELOXATIN [Suspect]
     Dosage: 120 MG OTHER - INTRAVENOUS NOS
     Route: 042
     Dates: start: 20040326, end: 20040326
  2. AVASTIN [Suspect]
     Indication: COLON CANCER
     Dosage: 500 MG OTHER - INTRAVENOUS NOS
     Route: 042
     Dates: start: 20040326
  3. FLUOROURACIL [Concomitant]
  4. LEUCOVORIN [Concomitant]

REACTIONS (1)
  - WEIGHT INCREASED [None]
